FAERS Safety Report 6486858-3 (Version None)
Quarter: 2009Q4

REPORT INFORMATION
  Report Type: 
  Country: None (occurrence: None)
  Receive Date: 20091210
  Receipt Date: 20090906
  Transmission Date: 20100525
  Serious: No
  Sender: FDA-Public Use
  Company Number: US-BAYER-200927431NA

PATIENT
  Age: 23 Year
  Sex: Female

DRUGS (3)
  1. YASMIN [Suspect]
     Indication: CONTRACEPTION
     Route: 048
  2. BETASERON [Suspect]
     Indication: MULTIPLE SCLEROSIS
     Route: 058
     Dates: start: 20071017
  3. ADVIL [Concomitant]

REACTIONS (6)
  - DEPRESSION [None]
  - HYPOAESTHESIA [None]
  - INFLUENZA [None]
  - INJECTION SITE MASS [None]
  - INJECTION SITE PAIN [None]
  - TREMOR [None]
